FAERS Safety Report 19745472 (Version 1)
Quarter: 2021Q3

REPORT INFORMATION
  Report Type: Spontaneous
  Country: ES (occurrence: ES)
  Receive Date: 20210825
  Receipt Date: 20210825
  Transmission Date: 20211014
  Serious: Yes (Hospitalization)
  Sender: FDA-Public Use
  Company Number: ES-TEVA-2021-ES-1944954

PATIENT
  Age: 94 Year
  Sex: Female

DRUGS (1)
  1. NAPROXENO (2002A) [Suspect]
     Active Substance: NAPROXEN
     Indication: ARTHRALGIA
     Dosage: 1 TABLET EVERY 24 HOURS (DATE AND DOSE OF HORUS), 500 MG
     Route: 048
     Dates: start: 20210505, end: 20210706

REACTIONS (1)
  - Lower gastrointestinal haemorrhage [Recovered/Resolved]

NARRATIVE: CASE EVENT DATE: 20210704
